FAERS Safety Report 5123137-0 (Version None)
Quarter: 2006Q4

REPORT INFORMATION
  Report Type: 
  Country: None (occurrence: None)
  Receive Date: 20061009
  Receipt Date: 20060927
  Transmission Date: 20070319
  Serious: Yes (Hospitalization)
  Sender: FDA-Public Use
  Company Number: FI-JNJFOC-20061001551

PATIENT
  Sex: Female

DRUGS (8)
  1. DAKTARIN [Suspect]
     Indication: ORAL CANDIDIASIS
     Route: 048
     Dates: start: 20060901, end: 20060912
  2. MAREVAN [Interacting]
     Indication: ATRIAL FIBRILLATION
     Route: 048
     Dates: start: 20000101
  3. DIOVAN COMP [Concomitant]
     Indication: HYPERTENSION
     Route: 048
  4. DETRUSITOL [Concomitant]
     Indication: POLLAKIURIA
     Route: 048
  5. DOXAL [Concomitant]
     Indication: DEPRESSION
     Route: 048
  6. SPESICOR DOS [Concomitant]
     Indication: CORONARY ARTERY DISEASE
     Route: 048
  7. ZOCOR [Concomitant]
     Indication: HYPERCHOLESTEROLAEMIA
     Route: 048
  8. ESCOR [Concomitant]
     Indication: HYPERTENSION
     Route: 048

REACTIONS (3)
  - DRUG INTERACTION [None]
  - HAEMATURIA [None]
  - INTERNATIONAL NORMALISED RATIO INCREASED [None]
